FAERS Safety Report 8846941 (Version 1)
Quarter: 2012Q4

REPORT INFORMATION
  Report Type: Spontaneous
  Country: US (occurrence: None)
  Receive Date: 20121017
  Receipt Date: 20121017
  Transmission Date: 20130627
  Serious: Yes (Hospitalization, Other)
  Sender: FDA-Public Use
  Company Number: None

PATIENT
  Age: 45 Year
  Sex: Male
  Weight: 102.06 kg

DRUGS (2)
  1. ZOFRAN [Suspect]
     Dates: start: 20120918, end: 20120918
  2. DILAUDID [Suspect]
     Dates: start: 20120918, end: 20120918

REACTIONS (2)
  - Convulsion [None]
  - Headache [None]
